FAERS Safety Report 5085736-4 (Version None)
Quarter: 2006Q3

REPORT INFORMATION
  Report Type: 
  Country: None (occurrence: None)
  Receive Date: 20060822
  Receipt Date: 20060815
  Transmission Date: 20061208
  Serious: Yes (Hospitalization)
  Sender: FDA-Public Use
  Company Number: US-JNJFOC-20060703332

PATIENT
  Age: 65 Year
  Sex: Male
  Weight: 84.37 kg

DRUGS (10)
  1. REMICADE [Suspect]
     Indication: COLITIS ULCERATIVE
     Dosage: ^ONCE OR TWICE^
     Route: 042
  2. 6-MP [Concomitant]
     Indication: COLITIS ULCERATIVE
  3. ASACOL [Concomitant]
  4. ASACOL [Concomitant]
     Indication: COLITIS ULCERATIVE
     Dosage: DOSE 2 TABLETS FOUR TIMES/DAY
  5. AZATHIOPRINE [Concomitant]
  6. ENTEROCORT [Concomitant]
     Dosage: DOSE 1 TABLET ONCE PER DAY
  7. PREDNISONE [Concomitant]
  8. AMBIEN [Concomitant]
  9. QUESTRAN LIGHT [Concomitant]
     Dosage: ONCE DAILY AS NEEDED
  10. FLOMAX [Concomitant]

REACTIONS (5)
  - ALANINE AMINOTRANSFERASE INCREASED [None]
  - CARDIOMEGALY [None]
  - PULMONARY EMBOLISM [None]
  - SYNCOPE [None]
  - TRICUSPID VALVE INCOMPETENCE [None]
